FAERS Safety Report 26117131 (Version 1)
Quarter: 2025Q4

REPORT INFORMATION
  Report Type: Spontaneous
  Country: EU (occurrence: EU)
  Receive Date: 20251203
  Receipt Date: 20251203
  Transmission Date: 20260118
  Serious: Yes (Other)
  Sender: CHEPLAPHARM
  Company Number: None

PATIENT
  Age: 57 Year
  Sex: Male

DRUGS (6)
  1. OLANZAPINE [Suspect]
     Active Substance: OLANZAPINE
  2. OXAZEPAM [Suspect]
     Active Substance: OXAZEPAM
  3. COCAINE [Suspect]
     Active Substance: COCAINE
  4. TRAMADOL HYDROCHLORIDE [Suspect]
     Active Substance: TRAMADOL HYDROCHLORIDE
  5. CYAMEMAZINE [Concomitant]
     Active Substance: CYAMEMAZINE
  6. SUBUTEX [Concomitant]
     Active Substance: BUPRENORPHINE HYDROCHLORIDE

REACTIONS (6)
  - Drug abuse [Unknown]
  - Substance use disorder [Unknown]
  - Hyperkalaemia [Unknown]
  - Behaviour disorder [Recovered/Resolved]
  - Somnolence [Recovered/Resolved]
  - Miosis [Recovered/Resolved]

NARRATIVE: CASE EVENT DATE: 20250701
